FAERS Safety Report 4586861-4 (Version None)
Quarter: 2005Q1

REPORT INFORMATION
  Report Type: 
  Country: None (occurrence: None)
  Receive Date: 20050215
  Receipt Date: 20050201
  Transmission Date: 20050727
  Serious: Yes (Hospitalization)
  Sender: FDA-Public Use
  Company Number: 2004BI000042

PATIENT
  Sex: Male
  Weight: 72.5755 kg

DRUGS (6)
  1. AVONEX [Suspect]
     Indication: MULTIPLE SCLEROSIS
     Dosage: 30 UG;QW;IM
     Route: 030
     Dates: start: 20000101, end: 20030101
  2. AVONEX [Suspect]
     Indication: MULTIPLE SCLEROSIS
     Dosage: 30 UG;QW;IM
     Route: 030
     Dates: start: 20030101
  3. NEURONTIN [Concomitant]
  4. SKELAXIN [Concomitant]
  5. DURAGESIC-100 [Concomitant]
  6. MULTI-VITAMIN [Concomitant]

REACTIONS (6)
  - BRONCHITIS [None]
  - DIABETES MELLITUS [None]
  - HIP FRACTURE [None]
  - HYPOAESTHESIA [None]
  - INTERVERTEBRAL DISC PROTRUSION [None]
  - PNEUMONIA [None]
